FAERS Safety Report 24141711 (Version 1)
Quarter: 2024Q3

REPORT INFORMATION
  Report Type: Spontaneous
  Country: GB (occurrence: GB)
  Receive Date: 20240726
  Receipt Date: 20240726
  Transmission Date: 20241016
  Serious: Yes (Other)
  Sender: MYLAN
  Company Number: GB-MHRA-MIDB-12cf47a7-7140-475f-b81e-a5d07502392c

PATIENT
  Age: 33 Year
  Sex: Male

DRUGS (15)
  1. LEVOFLOXACIN [Suspect]
     Active Substance: LEVOFLOXACIN
     Indication: Product used for unknown indication
     Dosage: 500 MILLIGRAM, AM (MORNING, ONCE A DAY)
     Route: 065
  2. LINEZOLID [Suspect]
     Active Substance: LINEZOLID
     Indication: Product used for unknown indication
     Dosage: 600 MILLIGRAM, AM (MORNING, ONCE A DAY)
     Route: 065
  3. CLOFAZIMINE [Suspect]
     Active Substance: CLOFAZIMINE
     Indication: Product used for unknown indication
     Dosage: 100 MILLIGRAM, QD (50MG CAPSULES TWO MORNING)
     Route: 065
  4. PYRIDOXINE [Concomitant]
     Active Substance: PYRIDOXINE
     Dosage: 50 MILLIGRAM, BID (ONE TWICE A DAY MORNING AND TEATIME)
     Route: 065
  5. BEDAQUILINE [Concomitant]
     Active Substance: BEDAQUILINE
     Dosage: 400 MILLIGRAM, QD (BEDAQUILINE 100MG TABLETS 400MG AT TEATIME UNTIL 16/11/23 )
     Route: 065
     Dates: end: 20231116
  6. BEDAQUILINE [Concomitant]
     Active Substance: BEDAQUILINE
     Dosage: 200 MILLIGRAM, 3XW (200MG THREE TIMES A WEEK ON MONDAY, WEDNESDAY AND FRIDAY FROM 17/11/23 ONWARDS
     Route: 065
     Dates: start: 20231117
  7. DEXAMETHASONE [Concomitant]
     Active Substance: DEXAMETHASONE
     Dosage: 4 MILLIGRAM, BID (4MG TWICE A DAY MORNING AND LUNCHTIME FOR 4 DAYS )
     Route: 065
  8. DEXAMETHASONE [Concomitant]
     Active Substance: DEXAMETHASONE
     Dosage: 4 MILLIGRAM, AM (4MG MORNING FOR 7 DAYS)
     Route: 065
  9. DEXAMETHASONE [Concomitant]
     Active Substance: DEXAMETHASONE
     Dosage: 2 MILLIGRAM, AM (2MG MORNING FOR 7 DAYS)
     Route: 065
  10. DEXAMETHASONE [Concomitant]
     Active Substance: DEXAMETHASONE
     Dosage: 3000 MICROGRAM, AM (3000MCG MORNING FOR 7 DAYS)
     Route: 065
  11. DEXAMETHASONE [Concomitant]
     Active Substance: DEXAMETHASONE
     Dosage: 1000 MICROGRAM, AM (1000MCG MORNING FOR 7 DAYS)
     Route: 065
  12. ACETAMINOPHEN [Concomitant]
     Active Substance: ACETAMINOPHEN
     Dosage: 1000 MILLIGRAM (500MG TABLETS. TWO FOUR TIMES A DAY WHEN REQUIRED)
     Route: 065
  13. LANSOPRAZOLE [Concomitant]
     Active Substance: LANSOPRAZOLE
     Dosage: 30 MILLIGRAM, AM (MORNING)
     Route: 065
  14. CYCLOSERINE [Concomitant]
     Active Substance: CYCLOSERINE
     Dosage: 250 MILLIGRAM, BID
     Route: 065
  15. ENSURE [Concomitant]
     Active Substance: AMINO ACIDS\DEXTROSE\ELECTROLYTES NOS\SOYBEAN OIL\VITAMINS
     Dosage: UNK, BID ( ONE TWICE A DAY LUNCHTIME AND TEATIME)
     Route: 065

REACTIONS (2)
  - Drug-induced liver injury [Recovered/Resolved]
  - Liver function test abnormal [Unknown]
